FAERS Safety Report 8716499 (Version 5)
Quarter: 2012Q4

REPORT INFORMATION
  Report Type: 
  Country: US (occurrence: US)
  Receive Date: 20120810
  Receipt Date: 20121101
  Transmission Date: 20130627
  Serious: Yes (Hospitalization, Disabling, Other)
  Sender: FDA-Public Use
  Company Number: US-009507513-2012SP023053

PATIENT

DRUGS (2)
  1. NUVARING [Suspect]
     Indication: HORMONE THERAPY
     Dosage: UNK
     Route: 067
     Dates: start: 2007, end: 20100119
  2. NUVARING [Suspect]
     Indication: CONTRACEPTION

REACTIONS (19)
  - Asthma [Unknown]
  - Pulmonary embolism [Unknown]
  - Deep vein thrombosis [Unknown]
  - Irritable bowel syndrome [Unknown]
  - Depression [Unknown]
  - Breast cellulitis [Unknown]
  - Subcutaneous abscess [Unknown]
  - Staphylococcal infection [Unknown]
  - Dysmenorrhoea [Unknown]
  - Menorrhagia [Unknown]
  - Drug level fluctuating [Unknown]
  - Bronchitis [Recovering/Resolving]
  - Ulcer haemorrhage [Unknown]
  - Large intestine polyp [Unknown]
  - Migraine [Unknown]
  - Lactose intolerance [Unknown]
  - Hypercoagulation [Unknown]
  - Haemangioma of liver [Unknown]
  - Cellulitis [Unknown]
